FAERS Safety Report 24795081 (Version 2)
Quarter: 2025Q3

REPORT INFORMATION
  Report Type: Spontaneous
  Country: US (occurrence: US)
  Receive Date: 20241231
  Receipt Date: 20250803
  Transmission Date: 20251021
  Serious: Yes (Hospitalization, Other)
  Sender: ALEXION PHARMACEUTICALS
  Company Number: US-ASTRAZENECA-202412USA022830US

PATIENT
  Age: 36 Year
  Sex: Male

DRUGS (3)
  1. FARXIGA [Suspect]
     Active Substance: DAPAGLIFLOZIN PROPANEDIOL
     Dosage: 99.02 MILLIGRAM, QD
     Dates: start: 202310
  2. CARVEDILOL [Suspect]
     Active Substance: CARVEDILOL
     Route: 065
  3. ENTRESTO [Suspect]
     Active Substance: SACUBITRIL\VALSARTAN
     Route: 065

REACTIONS (3)
  - Loss of consciousness [Unknown]
  - Cardiac flutter [Unknown]
  - Hypertension [Unknown]

NARRATIVE: CASE EVENT DATE: 20231030
